FAERS Safety Report 9551483 (Version 1)
Quarter: 2013Q2

REPORT INFORMATION
  Report Type: Spontaneous
  Country: US (occurrence: None)
  Receive Date: 20130627
  Receipt Date: 20130627
  Transmission Date: 20140414
  Serious: No
  Sender: FDA-Public Use
  Company Number: 1000044153

PATIENT
  Age: 70 Year
  Sex: Female

DRUGS (2)
  1. LINZESS (LINACLOTIDE) (145 MICROGRAM, CAPSULES) [Suspect]
     Indication: CONSTIPATION
     Dosage: 145 MCG, 1 IN 1 D
     Route: 048
     Dates: start: 20130313, end: 20130322
  2. LINZESS (LINACLOTIDE) (290 MICROGRAM, CAPSULES) [Suspect]
     Dosage: 290 MCG, 1 IN 1 D
     Route: 048
     Dates: start: 20130323, end: 20130330

REACTIONS (3)
  - Abdominal distension [None]
  - Diarrhoea [None]
  - Drug ineffective [None]
